FAERS Safety Report 9761631 (Version 3)
Quarter: 2014Q1

REPORT INFORMATION
  Report Type: Report from Study
  Country: CA (occurrence: CA)
  Receive Date: 20131216
  Receipt Date: 20140113
  Transmission Date: 20141002
  Serious: Yes (Other)
  Sender: FDA-Public Use
  Company Number: CA-ABBVIE-13P-028-1122270-00

PATIENT
  Sex: Female
  Weight: 77.18 kg

DRUGS (2)
  1. HUMIRA [Suspect]
     Indication: UVEITIS
     Route: 058
     Dates: start: 20121025, end: 20131017
  2. HUMIRA [Suspect]
     Route: 058
     Dates: start: 20131206

REACTIONS (6)
  - Arthropathy [Unknown]
  - Arthralgia [Not Recovered/Not Resolved]
  - Post procedural infection [Recovered/Resolved]
  - Oedema [Not Recovered/Not Resolved]
  - Joint warmth [Not Recovered/Not Resolved]
  - Joint injury [Not Recovered/Not Resolved]
